FAERS Safety Report 17511144 (Version 4)
Quarter: 2020Q4

REPORT INFORMATION
  Report Type: Spontaneous
  Country: US (occurrence: US)
  Receive Date: 20200306
  Receipt Date: 20201008
  Transmission Date: 20210113
  Serious: Yes (Hospitalization, Other)
  Sender: FDA-Public Use
  Company Number: US-INDIVIOR US-INDV-123840-2020

PATIENT
  Sex: Female

DRUGS (3)
  1. BUPRENEX [Suspect]
     Active Substance: BUPRENORPHINE HYDROCHLORIDE
     Indication: INFLAMMATION
     Dosage: UNK (STARTED INCREASING THE DOSE)
     Route: 051
  2. BUPRENEX [Suspect]
     Active Substance: BUPRENORPHINE HYDROCHLORIDE
     Dosage: 2 ML EVERY 4-6 HOURS
     Route: 051
  3. BUPRENEX [Suspect]
     Active Substance: BUPRENORPHINE HYDROCHLORIDE
     Indication: PAIN
     Dosage: UNK (INITIAL STARTING DOSE)
     Route: 051
     Dates: start: 2003

REACTIONS (8)
  - Drug withdrawal syndrome [Recovered/Resolved]
  - Loss of consciousness [Recovered/Resolved]
  - Anaphylactic reaction [Recovered/Resolved]
  - Pain [Not Recovered/Not Resolved]
  - Hypertension [Not Recovered/Not Resolved]
  - Drug intolerance [Recovered/Resolved]
  - Fall [Recovered/Resolved]
  - Dysarthria [Unknown]
